FAERS Safety Report 16756549 (Version 3)
Quarter: 2025Q3

REPORT INFORMATION
  Report Type: Spontaneous
  Country: EU (occurrence: EU)
  Receive Date: 20190829
  Receipt Date: 20250822
  Transmission Date: 20251021
  Serious: Yes (Death, Hospitalization, Other)
  Sender: MYLAN
  Company Number: EU-SA-200712053GDDC

PATIENT
  Age: 5 Year
  Sex: Male

DRUGS (28)
  1. METHOTREXATE [Suspect]
     Active Substance: METHOTREXATE
     Indication: Acute lymphocytic leukaemia
  2. METHOTREXATE [Suspect]
     Active Substance: METHOTREXATE
     Route: 037
  3. METHOTREXATE [Suspect]
     Active Substance: METHOTREXATE
     Route: 037
  4. METHOTREXATE [Suspect]
     Active Substance: METHOTREXATE
  5. DOXORUBICIN [Suspect]
     Active Substance: DOXORUBICIN
     Indication: Acute lymphocytic leukaemia
  6. DOXORUBICIN [Suspect]
     Active Substance: DOXORUBICIN
     Route: 065
  7. DOXORUBICIN [Suspect]
     Active Substance: DOXORUBICIN
     Route: 065
  8. DOXORUBICIN [Suspect]
     Active Substance: DOXORUBICIN
  9. CYTARABINE [Suspect]
     Active Substance: CYTARABINE
     Indication: Acute lymphocytic leukaemia
  10. CYTARABINE [Suspect]
     Active Substance: CYTARABINE
     Route: 065
  11. CYTARABINE [Suspect]
     Active Substance: CYTARABINE
     Route: 065
  12. CYTARABINE [Suspect]
     Active Substance: CYTARABINE
  13. CYCLOPHOSPHAMIDE [Suspect]
     Active Substance: CYCLOPHOSPHAMIDE
     Indication: Acute lymphocytic leukaemia
  14. CYCLOPHOSPHAMIDE [Suspect]
     Active Substance: CYCLOPHOSPHAMIDE
     Route: 065
  15. CYCLOPHOSPHAMIDE [Suspect]
     Active Substance: CYCLOPHOSPHAMIDE
     Route: 065
  16. CYCLOPHOSPHAMIDE [Suspect]
     Active Substance: CYCLOPHOSPHAMIDE
  17. MERCAPTOPURINE [Suspect]
     Active Substance: MERCAPTOPURINE
     Indication: Acute lymphocytic leukaemia
  18. MERCAPTOPURINE [Suspect]
     Active Substance: MERCAPTOPURINE
     Route: 065
  19. MERCAPTOPURINE [Suspect]
     Active Substance: MERCAPTOPURINE
     Route: 065
  20. MERCAPTOPURINE [Suspect]
     Active Substance: MERCAPTOPURINE
  21. DAUNORUBICIN [Suspect]
     Active Substance: DAUNORUBICIN
     Indication: Acute lymphocytic leukaemia
  22. DAUNORUBICIN [Suspect]
     Active Substance: DAUNORUBICIN
     Route: 065
  23. DAUNORUBICIN [Suspect]
     Active Substance: DAUNORUBICIN
     Route: 065
  24. DAUNORUBICIN [Suspect]
     Active Substance: DAUNORUBICIN
  25. VINCRISTINE SULFATE [Suspect]
     Active Substance: VINCRISTINE SULFATE
     Indication: Acute lymphocytic leukaemia
  26. VINCRISTINE SULFATE [Suspect]
     Active Substance: VINCRISTINE SULFATE
     Route: 065
  27. VINCRISTINE SULFATE [Suspect]
     Active Substance: VINCRISTINE SULFATE
     Route: 065
  28. VINCRISTINE SULFATE [Suspect]
     Active Substance: VINCRISTINE SULFATE

REACTIONS (1)
  - Glioma [Fatal]
